FAERS Safety Report 7927328-2 (Version None)
Quarter: 2011Q4

REPORT INFORMATION
  Report Type: 
  Country: None (occurrence: None)
  Receive Date: 20111117
  Receipt Date: 20111117
  Transmission Date: 20120403
  Serious: No
  Sender: FDA-Public Use
  Company Number: None

PATIENT
  Sex: Female

DRUGS (1)
  1. ENBREL [Suspect]
     Dosage: 50MG QD SUBQ
     Route: 058
     Dates: start: 20110801, end: 20111114

REACTIONS (3)
  - PYREXIA [None]
  - DYSPEPSIA [None]
  - DIZZINESS [None]
